FAERS Safety Report 15690999 (Version 3)
Quarter: 2019Q1

REPORT INFORMATION
  Report Type: Report from Study
  Country: IT (occurrence: IT)
  Receive Date: 20181205
  Receipt Date: 20190222
  Transmission Date: 20190417
  Serious: Yes (Hospitalization)
  Sender: FDA-Public Use
  Company Number: IT-PFIZER INC-2018490626

PATIENT
  Age: 69 Year
  Sex: Male
  Weight: 78 kg

DRUGS (21)
  1. TACHIDOL [Concomitant]
     Active Substance: ACETAMINOPHEN\CODEINE PHOSPHATE
     Dosage: 500 G, UNK
     Dates: start: 201804
  2. PEMETREXED. [Suspect]
     Active Substance: PEMETREXED
     Dosage: 500 MG/SQ METER, Q3W
     Route: 042
     Dates: start: 20181011, end: 20181011
  3. EPACADOSTAT [Suspect]
     Active Substance: EPACADOSTAT
     Indication: NON-SMALL CELL LUNG CANCER METASTATIC
     Dosage: 100 MG, 2X/DAY, TABLET
     Route: 048
     Dates: start: 20180808, end: 20181010
  4. EPACADOSTAT [Suspect]
     Active Substance: EPACADOSTAT
     Dosage: 100 MG, 2X/DAY, TABLET
     Route: 048
     Dates: start: 20181011, end: 20181121
  5. EPACADOSTAT [Suspect]
     Active Substance: EPACADOSTAT
     Dosage: UNK, 2X/DAY, TABLET, MG
     Route: 048
     Dates: start: 20181122
  6. TARGIN [Concomitant]
     Active Substance: NALOXONE HYDROCHLORIDE\OXYCODONE HYDROCHLORIDE
     Dosage: 20 MG, UNK
     Dates: start: 20180806
  7. CARBOPLATIN. [Suspect]
     Active Substance: CARBOPLATIN
     Dosage: AREA UNDER CURVE (AUC) 5, Q3W, FOR 4 CYCLE
     Route: 042
     Dates: start: 20181011
  8. LANSOPRAZOLE. [Concomitant]
     Active Substance: LANSOPRAZOLE
     Dosage: 30 MG, UNK
     Dates: start: 20180806
  9. CARBOPLATIN. [Suspect]
     Active Substance: CARBOPLATIN
     Indication: NON-SMALL CELL LUNG CANCER METASTATIC
     Dosage: AREA UNDER CURVE (AUC) 5, Q3W, FOR 4 CYCLE
     Route: 042
     Dates: start: 20180808, end: 20180919
  10. HUMALOG [Concomitant]
     Active Substance: INSULIN LISPRO
     Dosage: 6 DF, UNK
     Dates: start: 20150715
  11. PEMBROLIZUMAB. [Suspect]
     Active Substance: PEMBROLIZUMAB
     Dosage: 200 MG, Q3W
     Route: 042
     Dates: start: 20181011, end: 20181011
  12. LOSARTAN. [Concomitant]
     Active Substance: LOSARTAN
     Dosage: 50 MG, UNK
     Dates: start: 20180115
  13. RANITIDINE. [Concomitant]
     Active Substance: RANITIDINE
     Dosage: 100 MG, UNK
     Dates: start: 20181011, end: 20181011
  14. GRANISETRON [Concomitant]
     Active Substance: GRANISETRON
     Dosage: SOLUTION, 3 MG, UNK
     Dates: start: 20181011, end: 20181011
  15. PEMETREXED. [Suspect]
     Active Substance: PEMETREXED
     Dosage: 500 MG/SQ METER, Q3W
     Route: 042
     Dates: start: 20181122
  16. LANTUS [Concomitant]
     Active Substance: INSULIN GLARGINE
     Dosage: 24 DF, UNK
     Dates: start: 20150715
  17. PEMBROLIZUMAB. [Suspect]
     Active Substance: PEMBROLIZUMAB
     Indication: NON-SMALL CELL LUNG CANCER METASTATIC
     Dosage: 200 MG, Q3W
     Route: 042
     Dates: start: 20180808, end: 20180919
  18. PEMBROLIZUMAB. [Suspect]
     Active Substance: PEMBROLIZUMAB
     Dosage: 200 MG, Q3W
     Route: 042
     Dates: start: 20181122
  19. PEMETREXED. [Suspect]
     Active Substance: PEMETREXED
     Indication: NON-SMALL CELL LUNG CANCER METASTATIC
     Dosage: 500 MG/SQ METER, Q3W
     Route: 042
     Dates: start: 20180808, end: 20180919
  20. DEXAMETHASONE. [Concomitant]
     Active Substance: DEXAMETHASONE
     Dosage: 8 MG, UNK
     Dates: start: 20181011, end: 20181011
  21. BRUFEN [Concomitant]
     Active Substance: IBUPROFEN
     Dosage: 600 MG, UNK
     Dates: start: 20180806

REACTIONS (1)
  - Pneumonia [Recovered/Resolved]

NARRATIVE: CASE EVENT DATE: 20181025
